FAERS Safety Report 18719050 (Version 2)
Quarter: 2021Q3

REPORT INFORMATION
  Report Type: Spontaneous
  Country: US (occurrence: US)
  Receive Date: 20210108
  Receipt Date: 20210714
  Transmission Date: 20211014
  Serious: No
  Sender: FDA-Public Use
  Company Number: US-NOVOPROD-773212

PATIENT
  Age: 47 Year
  Sex: Male
  Weight: 134.1 kg

DRUGS (1)
  1. RYBELSUS [Suspect]
     Active Substance: SEMAGLUTIDE
     Indication: DIABETES MELLITUS
     Dosage: 7 MG, QD
     Route: 048
     Dates: start: 202008, end: 20201204

REACTIONS (7)
  - Blood glucose decreased [Recovered/Resolved]
  - Off label use [Recovered/Resolved]
  - Rash pruritic [Recovering/Resolving]
  - Abdominal discomfort [Recovered/Resolved]
  - Gastrointestinal motility disorder [Recovered/Resolved]
  - Paraesthesia [Recovered/Resolved]
  - Blood glucose increased [Recovered/Resolved]

NARRATIVE: CASE EVENT DATE: 2020
